FAERS Safety Report 9787964 (Version 1)
Quarter: 2013Q4

REPORT INFORMATION
  Report Type: Spontaneous
  Country: US (occurrence: None)
  Receive Date: 20131227
  Receipt Date: 20131227
  Transmission Date: 20140711
  Serious: Yes (Death)
  Sender: FDA-Public Use
  Company Number: None

PATIENT
  Age: 54 Year
  Sex: Male

DRUGS (8)
  1. PEGASYS 180MCG/0.5ML ROCHE [Suspect]
     Indication: CHRONIC HEPATITIS C
     Route: 058
     Dates: start: 20120228, end: 20120912
  2. RIBAVIRIN [Suspect]
     Indication: CHRONIC HEPATITIS C
     Route: 048
     Dates: start: 20120228, end: 20120912
  3. ATENOLOL [Concomitant]
  4. NEXIUM [Concomitant]
  5. SYNTHROID [Concomitant]
  6. ZYRTEC [Concomitant]
  7. ASPIRIN [Concomitant]
  8. CRESTOR [Concomitant]

REACTIONS (1)
  - Myocardial infarction [None]
